FAERS Safety Report 11575741 (Version 1)
Quarter: 2015Q3

REPORT INFORMATION
  Report Type: Spontaneous
  Country: US (occurrence: None)
  Receive Date: 20150929
  Receipt Date: 20150929
  Transmission Date: 20151125
  Serious: Yes (Other)
  Sender: FDA-Public Use
  Company Number: None

PATIENT
  Age: 75 Year
  Sex: Female

DRUGS (1)
  1. SYNVISC [Suspect]
     Active Substance: HYALURONATE SODIUM
     Indication: OSTEOARTHRITIS
     Dosage: WEEKLY FOR 3 WEEKS, INJECT INTO RIGHT KNEE
     Dates: start: 20150917

REACTIONS (3)
  - Synovial cyst [None]
  - Pain [None]
  - Joint swelling [None]

NARRATIVE: CASE EVENT DATE: 20150925
